FAERS Safety Report 6469698-0 (Version None)
Quarter: 2009Q4

REPORT INFORMATION
  Report Type: 
  Country: None (occurrence: None)
  Receive Date: 20091203
  Receipt Date: 20071120
  Transmission Date: 20100525
  Serious: Yes (Hospitalization)
  Sender: FDA-Public Use
  Company Number: US-ELI_LILLY_AND_COMPANY-US200710005495

PATIENT
  Sex: Female

DRUGS (13)
  1. PEMETREXED [Suspect]
     Indication: NON-SMALL CELL LUNG CANCER
     Dosage: 375 MG, Q 21 D
     Route: 042
     Dates: start: 20070720, end: 20071015
  2. FOLIC ACID [Concomitant]
     Indication: SUPPLEMENTATION THERAPY
     Dates: start: 20070616
  3. VITAMIN B-12 [Concomitant]
     Indication: SUPPLEMENTATION THERAPY
     Dates: start: 20070616
  4. DEXAMETHASONE TAB [Concomitant]
     Indication: PREMEDICATION
     Dates: start: 20070616
  5. NU-IRON [Concomitant]
     Indication: SUPPLEMENTATION THERAPY
     Dates: start: 20070108
  6. ZOCOR [Concomitant]
     Indication: BLOOD CHOLESTEROL INCREASED
     Dates: start: 20070108
  7. XANAX [Concomitant]
     Indication: ANXIETY
     Dates: start: 20070108
  8. SYNTHROID [Concomitant]
     Indication: HYPOTHYROIDISM
     Dates: start: 20070108
  9. MULTI-VITAMIN [Concomitant]
     Indication: SUPPLEMENTATION THERAPY
  10. FENTANYL [Concomitant]
     Indication: PAIN
     Route: 062
     Dates: start: 20070801
  11. NEURONTIN [Concomitant]
     Indication: PAIN
     Dates: start: 20070108
  12. DARVOCET [Concomitant]
     Indication: PAIN
     Dates: start: 20070108
  13. NEUPOGEN [Concomitant]
     Dosage: 480 UG, UNK
     Dates: start: 20071029

REACTIONS (4)
  - FATIGUE [None]
  - HYPOKALAEMIA [None]
  - PYREXIA [None]
  - SEPSIS [None]
